FAERS Safety Report 24636984 (Version 3)
Quarter: 2025Q1

REPORT INFORMATION
  Report Type: Spontaneous
  Country: US (occurrence: US)
  Receive Date: 20241119
  Receipt Date: 20250120
  Transmission Date: 20250408
  Serious: Yes (Hospitalization, Other)
  Sender: BRISTOL-MYERS SQUIBB COMPANY
  Company Number: US-BRISTOL-MYERS SQUIBB COMPANY-2024-176606

PATIENT
  Age: 65 Year
  Sex: Male

DRUGS (7)
  1. REVLIMID [Suspect]
     Active Substance: LENALIDOMIDE
     Indication: Plasma cell myeloma
     Dosage: FREQUENCY: TAKE ONE CAPSULE BY MOUTH DAILY DAYS 1- 21 EVERY 28 DAYS/ 15 MG 21 DAYS 7 DAYS OFF
     Route: 048
     Dates: start: 20240319
  2. ADVIL [Concomitant]
     Active Substance: IBUPROFEN
     Indication: Product used for unknown indication
  3. AQUANIL HC [Concomitant]
     Active Substance: HYDROCORTISONE
     Indication: Product used for unknown indication
  4. LOSARTAN POTASSIUM [Concomitant]
     Active Substance: LOSARTAN POTASSIUM
     Indication: Product used for unknown indication
  5. PERCOCET [Concomitant]
     Active Substance: ACETAMINOPHEN\OXYCODONE HYDROCHLORIDE
     Indication: Product used for unknown indication
  6. VITAMIN D3 [Concomitant]
     Active Substance: CHOLECALCIFEROL
     Indication: Product used for unknown indication
  7. XGEVA [Concomitant]
     Active Substance: DENOSUMAB
     Indication: Product used for unknown indication

REACTIONS (4)
  - Back pain [Unknown]
  - Monoclonal immunoglobulin present [Recovering/Resolving]
  - Mallory-Weiss syndrome [Unknown]
  - Oesophageal food impaction [Unknown]

NARRATIVE: CASE EVENT DATE: 20240101
